FAERS Safety Report 13773930 (Version 4)
Quarter: 2018Q2

REPORT INFORMATION
  Report Type: Report from Study
  Country: CA (occurrence: CA)
  Receive Date: 20170720
  Receipt Date: 20180403
  Transmission Date: 20180711
  Serious: Yes (Other)
  Sender: FDA-Public Use
  Company Number: CA-BRISTOL-MYERS SQUIBB COMPANY-BMS-2017-022904

PATIENT
  Age: 42 Year
  Sex: Female

DRUGS (3)
  1. ABATACEPT [Suspect]
     Active Substance: ABATACEPT
     Indication: RHEUMATOID ARTHRITIS
     Route: 065
  2. ABATACEPT [Suspect]
     Active Substance: ABATACEPT
     Indication: SYSTEMIC LUPUS ERYTHEMATOSUS
     Dosage: 500 MG, Q3WK
     Route: 042
     Dates: start: 20100407
  3. ABATACEPT [Suspect]
     Active Substance: ABATACEPT
     Indication: PSORIATIC ARTHROPATHY
     Dosage: 500 MG, Q4WK
     Route: 042
     Dates: start: 20170320

REACTIONS (8)
  - Product use in unapproved indication [Unknown]
  - Peripheral swelling [Recovering/Resolving]
  - Pain [Not Recovered/Not Resolved]
  - Oedema peripheral [Recovering/Resolving]
  - Rheumatoid nodule [Not Recovered/Not Resolved]
  - Fatigue [Unknown]
  - Systemic lupus erythematosus [Not Recovered/Not Resolved]
  - Drug ineffective [Unknown]

NARRATIVE: CASE EVENT DATE: 20170308
